FAERS Safety Report 16105983 (Version 1)
Quarter: 2019Q1

REPORT INFORMATION
  Report Type: Spontaneous
  Country: FR (occurrence: FR)
  Receive Date: 20190322
  Receipt Date: 20190322
  Transmission Date: 20190418
  Serious: Yes (Hospitalization)
  Sender: FDA-Public Use
  Company Number: PHHY2019FR062621

PATIENT
  Age: 45 Year
  Sex: Male
  Weight: 43 kg

DRUGS (1)
  1. DESFERAL [Suspect]
     Active Substance: DEFEROXAMINE MESYLATE
     Indication: HAEMOCHROMATOSIS
     Dosage: 1500 MG, QW
     Route: 042
     Dates: start: 20151115, end: 20180418

REACTIONS (2)
  - Optic ischaemic neuropathy [Not Recovered/Not Resolved]
  - Pachymeningitis [Not Recovered/Not Resolved]

NARRATIVE: CASE EVENT DATE: 201805
